FAERS Safety Report 19634580 (Version 1)
Quarter: 2021Q3

REPORT INFORMATION
  Report Type: Report from Study
  Country: US (occurrence: US)
  Receive Date: 20210729
  Receipt Date: 20210729
  Transmission Date: 20211014
  Serious: Yes (Other)
  Sender: FDA-Public Use
  Company Number: US-GILEAD-2021-0542207

PATIENT
  Age: 26 Year
  Sex: Female

DRUGS (9)
  1. ATAZANAVIR. [Suspect]
     Active Substance: ATAZANAVIR
     Indication: HIV INFECTION
     Dosage: 300 MG, QD
     Route: 048
     Dates: start: 20200512, end: 20200706
  2. EVOTAZ [Suspect]
     Active Substance: ATAZANAVIR SULFATE\COBICISTAT
     Indication: HIV INFECTION
     Dosage: 1 DOSAGE FORM, QD
     Route: 048
     Dates: end: 20200512
  3. BICTEGRAVIR W/EMTRICITABINE/TENOFOVIR ALAFENAMIDE [Suspect]
     Active Substance: BICTEGRAVIR\EMTRICITABINE\TENOFOVIR ALAFENAMIDE
     Indication: HIV INFECTION
     Dosage: 1 DOSAGE FORM, QD
     Route: 048
     Dates: end: 20200512
  4. RITONAVIR. [Suspect]
     Active Substance: RITONAVIR
     Dosage: 1 DOSAGE FORM, QD
     Route: 048
     Dates: start: 20200706, end: 20200911
  5. RITONAVIR. [Suspect]
     Active Substance: RITONAVIR
     Dosage: 1 DOSAGE FORM, QD
     Route: 048
     Dates: start: 20200911, end: 20201126
  6. RITONAVIR. [Suspect]
     Active Substance: RITONAVIR
     Indication: HIV INFECTION
     Dosage: 1 DOSAGE FORM, QD
     Route: 048
     Dates: start: 20200512, end: 20200706
  7. ATAZANAVIR. [Suspect]
     Active Substance: ATAZANAVIR
     Dosage: 300 MG, QD
     Route: 048
     Dates: start: 20200706, end: 20200911
  8. ATAZANAVIR. [Suspect]
     Active Substance: ATAZANAVIR
     Dosage: 300 MG, QD
     Route: 048
     Dates: start: 20200911, end: 20201126
  9. TRIUMEQ [Suspect]
     Active Substance: ABACAVIR SULFATE\DOLUTEGRAVIR SODIUM\LAMIVUDINE
     Indication: HIV INFECTION
     Dosage: 1 DOSAGE FORM, QD
     Route: 048
     Dates: start: 20200512

REACTIONS (3)
  - Maternal exposure during pregnancy [Recovered/Resolved]
  - Polyhydramnios [Recovered/Resolved]
  - Premature delivery [Recovered/Resolved]

NARRATIVE: CASE EVENT DATE: 20200320
